FAERS Safety Report 9178957 (Version 1)
Quarter: 2012Q4

REPORT INFORMATION
  Report Type: 
  Country: DE (occurrence: US)
  Receive Date: 20121029
  Receipt Date: 20121029
  Transmission Date: 20130627
  Serious: Yes (Death, Other)
  Sender: FDA-Public Use
  Company Number: US-GENZYME-LEUK-1000039

PATIENT
  Age: 66 None
  Sex: Male

DRUGS (5)
  1. LEUKINE [Suspect]
     Indication: PROSTATE CANCER METASTATIC
     Dosage: 500 mcg, 3x/w
     Route: 058
     Dates: start: 20080820, end: 20100804
  2. LEUKINE [Suspect]
     Dosage: 500 mcg, 3x/w
     Route: 058
     Dates: start: 20101022
  3. CHEMOTHERAPEUTICS NOS [Concomitant]
     Indication: PRODUCT USED FOR UNKNOWN INDICATION
     Dosage: UNK
     Route: 065
     Dates: start: 20090211
  4. LUPRON [Concomitant]
     Indication: PRODUCT USED FOR UNKNOWN INDICATION
     Dosage: UNK
     Route: 065
  5. SYSTEMIC HORM.PREP.EXCL.SEX.HORM.AND INS [Concomitant]
     Indication: PRODUCT USED FOR UNKNOWN INDICATION
     Dosage: UNK
     Route: 066

REACTIONS (11)
  - Death [Fatal]
  - Blood urine present [Unknown]
  - Injection site reaction [Not Recovered/Not Resolved]
  - Chest pain [Recovered/Resolved]
  - Headache [Recovered/Resolved]
  - Neck pain [Recovered/Resolved]
  - Injection site swelling [Recovered/Resolved]
  - Injection site erythema [Not Recovered/Not Resolved]
  - Injection site inflammation [Not Recovered/Not Resolved]
  - Atrial fibrillation [Recovered/Resolved]
  - Diarrhoea [Recovered/Resolved]
